FAERS Safety Report 19832075 (Version 2)
Quarter: 2021Q3

REPORT INFORMATION
  Report Type: Spontaneous
  Country: US (occurrence: US)
  Receive Date: 20210915
  Receipt Date: 20210930
  Transmission Date: 20211014
  Serious: Yes (Other)
  Sender: FDA-Public Use
  Company Number: US-CIPLA LTD.-2021US06138

PATIENT

DRUGS (4)
  1. NADOLOL. [Suspect]
     Active Substance: NADOLOL
     Dosage: 40 MILLIGRAM, QD
     Route: 065
  2. NADOLOL. [Suspect]
     Active Substance: NADOLOL
     Dosage: UNK, STRENGTH: 40 MG, FOR ABOUT 4 MONTHS
     Route: 065
     Dates: start: 2020
  3. NADOLOL. [Suspect]
     Active Substance: NADOLOL
     Indication: HEART RATE INCREASED
     Dosage: UNK, STRENGTH: 80 MG, FOR ABOUT 4 MONTHS
     Route: 065
     Dates: start: 2020
  4. ASPIRIN [ACETYLSALICYLIC ACID] [Concomitant]
     Active Substance: ASPIRIN
     Indication: THROMBOSIS PROPHYLAXIS
     Dosage: 81 MILLIGRAM, QD
     Route: 065

REACTIONS (6)
  - Product substitution issue [Unknown]
  - Drug ineffective [Not Recovered/Not Resolved]
  - Condition aggravated [Unknown]
  - Palpitations [Recovering/Resolving]
  - Arthritis [Not Recovered/Not Resolved]
  - Heart rate irregular [Unknown]
